FAERS Safety Report 7121174-8 (Version None)
Quarter: 2010Q4

REPORT INFORMATION
  Report Type: 
  Country: None (occurrence: None)
  Receive Date: 20101124
  Receipt Date: 20101111
  Transmission Date: 20110411
  Serious: Yes (Hospitalization)
  Sender: FDA-Public Use
  Company Number: PHHY2010AU76682

PATIENT
  Sex: Male

DRUGS (1)
  1. CLOZARIL [Suspect]
     Dosage: 450 MG /DAILY
     Dates: start: 20020121

REACTIONS (3)
  - ANKLE FRACTURE [None]
  - DRUG DOSE OMISSION [None]
  - SURGERY [None]
